FAERS Safety Report 15093617 (Version 1)
Quarter: 2018Q3

REPORT INFORMATION
  Report Type: Spontaneous
  Country: US (occurrence: US)
  Receive Date: 20180629
  Receipt Date: 20180629
  Transmission Date: 20181010
  Serious: Yes (Other)
  Sender: FDA-Public Use
  Company Number: US-PFIZER INC-2018257492

PATIENT
  Age: 64 Year
  Sex: Female

DRUGS (1)
  1. EPINEPHRINE/LIDOCAINE HYDROCHLORIDE [Suspect]
     Active Substance: EPINEPHRINE\LIDOCAINE HYDROCHLORIDE
     Indication: ANAESTHESIA
     Dosage: 3 INJECTIONS

REACTIONS (3)
  - Weight increased [Unknown]
  - Metabolic disorder [Recovering/Resolving]
  - Inflammation [Recovering/Resolving]
